FAERS Safety Report 7005764-9 (Version None)
Quarter: 2010Q3

REPORT INFORMATION
  Report Type: 
  Country: None (occurrence: None)
  Receive Date: 20100921
  Receipt Date: 20100908
  Transmission Date: 20110219
  Serious: Yes (Hospitalization)
  Sender: FDA-Public Use
  Company Number: US-ELI_LILLY_AND_COMPANY-US200911002488

PATIENT
  Sex: Male

DRUGS (10)
  1. FORTEO [Suspect]
     Indication: OSTEOPOROSIS
     Dosage: 20 UG, DAILY (1/D)
     Dates: start: 20090801, end: 20090801
  2. FORTEO [Suspect]
     Dosage: 20 UG, DAILY (1/D)
  3. FLAGYL [Concomitant]
     Dates: end: 20091001
  4. MOBIC [Concomitant]
     Dosage: 20 MG, DAILY (1/D)
  5. COLAZAL [Concomitant]
     Dosage: 850 MG, 3/D
  6. LYRICA [Concomitant]
     Dosage: 100 MG, 2/D
  7. CALCIUM [Concomitant]
  8. IRON [Concomitant]
  9. VITAMIN A [Concomitant]
  10. PRAZOL /00661201/ [Concomitant]

REACTIONS (3)
  - CLOSTRIDIAL INFECTION [None]
  - HIP FRACTURE [None]
  - STAPHYLOCOCCAL INFECTION [None]
